FAERS Safety Report 15853943 (Version 1)
Quarter: 2019Q1

REPORT INFORMATION
  Report Type: Spontaneous
  Country: US (occurrence: US)
  Receive Date: 20190122
  Receipt Date: 20190122
  Transmission Date: 20190417
  Serious: No
  Sender: FDA-Public Use
  Company Number: US-PFIZER INC-2019023564

PATIENT
  Age: 90 Year
  Sex: Female
  Weight: 56.25 kg

DRUGS (2)
  1. LATANOPROST. [Suspect]
     Active Substance: LATANOPROST
     Dosage: 2 GTT, 1X/DAY; [ONE DROP IN BOTH EYES AT BEDTIME]
     Route: 047
     Dates: start: 2018
  2. LATANOPROST. [Suspect]
     Active Substance: LATANOPROST
     Indication: GLAUCOMA
     Dosage: 2 GTT, 1X/DAY; [ONE DROP IN BOTH EYES AT BEDTIME]
     Route: 047
     Dates: start: 2018

REACTIONS (3)
  - Poor quality product administered [Unknown]
  - Weight decreased [Unknown]
  - Product packaging quantity issue [Unknown]
